FAERS Safety Report 19617869 (Version 4)
Quarter: 2021Q3

REPORT INFORMATION
  Report Type: Report from Study
  Country: DE (occurrence: DE)
  Receive Date: 20210727
  Receipt Date: 20210925
  Transmission Date: 20211014
  Serious: Yes (Hospitalization)
  Sender: FDA-Public Use
  Company Number: DE-TAKEDA-DE201901388

PATIENT
  Age: 17 Year
  Weight: 73 kg

DRUGS (23)
  1. COMIRNATY [Concomitant]
     Active Substance: TOZINAMERAN
     Dosage: 1 DOSE, ONCE
     Route: 030
     Dates: start: 20210708, end: 20210708
  2. ADYNOVI [Suspect]
     Active Substance: ANTIHEMOPHILIC FACTOR, HUMAN RECOMBINANT
     Indication: HAEMOPHILIA
     Dosage: 3X 1000 IU, 15X 1000 IU
     Route: 065
  3. ADYNOVI [Suspect]
     Active Substance: ANTIHEMOPHILIC FACTOR, HUMAN RECOMBINANT
     Dosage: 3X 1000 IU, 15X 1000 IU
     Route: 065
  4. IBUPROFEN. [Concomitant]
     Active Substance: IBUPROFEN
     Indication: ANALGESIC THERAPY
     Dosage: 600 MILLIGRAM, ON DEMAND
     Route: 048
     Dates: start: 20201110, end: 20201111
  5. ADVATE [Suspect]
     Active Substance: ANTIHEMOPHILIC FACTOR, HUMAN RECOMBINANT
     Indication: HAEMOPHILIA
     Dosage: 2000 IU, AS REQ^D
     Route: 042
     Dates: start: 20120625, end: 20181120
  6. ADYNOVI [Suspect]
     Active Substance: ANTIHEMOPHILIC FACTOR, HUMAN RECOMBINANT
     Dosage: 3X 1000IU, 15X 1000 IU
     Route: 065
  7. ADYNOVI [Suspect]
     Active Substance: ANTIHEMOPHILIC FACTOR, HUMAN RECOMBINANT
     Dosage: 3X 1000 IU, 15X 1000 IU
     Route: 065
  8. ADYNOVI [Suspect]
     Active Substance: ANTIHEMOPHILIC FACTOR, HUMAN RECOMBINANT
     Dosage: 3X 1000 IU, 15X 1000 IU
     Route: 065
  9. ADYNOVI [Suspect]
     Active Substance: ANTIHEMOPHILIC FACTOR, HUMAN RECOMBINANT
     Dosage: 3X 1000 IU, 15X 1000 IU
     Route: 065
  10. COMIRNATY [Concomitant]
     Active Substance: TOZINAMERAN
     Indication: COVID-19 IMMUNISATION
     Dosage: 1 DOSE, ONCE
     Route: 030
     Dates: start: 20210528, end: 20210528
  11. PANTOPRAZOL [Concomitant]
     Active Substance: PANTOPRAZOLE SODIUM
     Indication: GASTROINTESTINAL DISORDER
     Dosage: 20 MILLIGRAM, QD
     Route: 048
     Dates: start: 20201110, end: 20201110
  12. ADVATE [Suspect]
     Active Substance: ANTIHEMOPHILIC FACTOR, HUMAN RECOMBINANT
     Indication: HAEMOPHILIA
     Dosage: 2000 IU, AS REQ^D
     Route: 042
     Dates: start: 20120625, end: 20181120
  13. ADYNOVI [Suspect]
     Active Substance: ANTIHEMOPHILIC FACTOR, HUMAN RECOMBINANT
     Indication: HAEMOPHILIA
     Dosage: 3X 1000 IU, 15X 1000 IU
     Route: 065
  14. ADYNOVI [Suspect]
     Active Substance: ANTIHEMOPHILIC FACTOR, HUMAN RECOMBINANT
     Dosage: 3X 1000IU, 15X 1000 IU
     Route: 065
  15. ADVATE [Suspect]
     Active Substance: ANTIHEMOPHILIC FACTOR, HUMAN RECOMBINANT
     Indication: HAEMOPHILIA
     Dosage: 2000 IU, AS REQ^D
     Route: 042
     Dates: start: 20120625, end: 20181120
  16. ADYNOVI [Suspect]
     Active Substance: ANTIHEMOPHILIC FACTOR, HUMAN RECOMBINANT
     Dosage: 3X 1000 IU, 15X 1000 IU
     Route: 065
  17. ADYNOVI [Suspect]
     Active Substance: ANTIHEMOPHILIC FACTOR, HUMAN RECOMBINANT
     Dosage: 2000 INTERNATIONAL UNIT (ON DEMAND)
     Route: 042
     Dates: start: 20181012, end: 20181120
  18. ADYNOVI [Suspect]
     Active Substance: ANTIHEMOPHILIC FACTOR, HUMAN RECOMBINANT
     Indication: HAEMOPHILIA
     Dosage: 3X 1000 IU, 15X 1000 IU
     Route: 065
  19. ADYNOVI [Suspect]
     Active Substance: ANTIHEMOPHILIC FACTOR, HUMAN RECOMBINANT
     Dosage: 3X 1000 IU, 15X 1000 IU
     Route: 065
  20. CYKLOKAPRON [Concomitant]
     Active Substance: TRANEXAMIC ACID
     Indication: HAEMORRHAGE
     Dosage: AS NEEDED
     Route: 050
     Dates: start: 20180702, end: 20180703
  21. ADYNOVI [Suspect]
     Active Substance: ANTIHEMOPHILIC FACTOR, HUMAN RECOMBINANT
     Dosage: 3X 1000IU, 15X 1000 IU
     Route: 065
  22. ADYNOVI [Suspect]
     Active Substance: ANTIHEMOPHILIC FACTOR, HUMAN RECOMBINANT
     Dosage: 2000 INTERNATIONAL UNIT (ON DEMAND)
     Route: 042
     Dates: start: 20181012, end: 20181120
  23. ADYNOVI [Suspect]
     Active Substance: ANTIHEMOPHILIC FACTOR, HUMAN RECOMBINANT
     Dosage: 2000 INTERNATIONAL UNIT (ON DEMAND)
     Route: 042
     Dates: start: 20181012, end: 20181120

REACTIONS (1)
  - Hand fracture [Recovered/Resolved]

NARRATIVE: CASE EVENT DATE: 20181229
